FAERS Safety Report 24274793 (Version 1)
Quarter: 2024Q3

REPORT INFORMATION
  Report Type: Spontaneous
  Country: IT (occurrence: IT)
  Receive Date: 20240902
  Receipt Date: 20240902
  Transmission Date: 20241016
  Serious: Yes (Other)
  Sender: KYOWA
  Company Number: IT-KYOWAKIRIN-2024KK020340

PATIENT

DRUGS (1)
  1. POTELIGEO [Suspect]
     Active Substance: MOGAMULIZUMAB-KPKC
     Indication: Cutaneous T-cell lymphoma
     Dosage: UNK
     Route: 065
     Dates: start: 202208

REACTIONS (5)
  - Bronchopulmonary aspergillosis [Unknown]
  - Pyrexia [Unknown]
  - Dyspnoea [Unknown]
  - C-reactive protein increased [Unknown]
  - Neutrophilia [Unknown]

NARRATIVE: CASE EVENT DATE: 20221101
